FAERS Safety Report 6647167-2 (Version None)
Quarter: 2010Q1

REPORT INFORMATION
  Report Type: 
  Country: None (occurrence: None)
  Receive Date: 20100323
  Receipt Date: 20100316
  Transmission Date: 20100710
  Serious: Yes (Death)
  Sender: FDA-Public Use
  Company Number: NL-GENENTECH-298178

PATIENT
  Sex: Female
  Weight: 61 kg

DRUGS (3)
  1. MABTHERA [Suspect]
     Indication: LYMPHOMA
     Dosage: UNK
     Route: 065
     Dates: start: 20091201
  2. BUSCOPAN [Suspect]
     Indication: LYMPHOMA
     Dosage: 240 MG, UNK
     Route: 048
     Dates: start: 20100105, end: 20100101
  3. CYCLOPHOSPHAMIDE [Suspect]
     Indication: LYMPHOMA
     Dosage: 3600 MG, UNK
     Route: 042
     Dates: start: 20100109, end: 20100110

REACTIONS (22)
  - ASCITES [None]
  - BLISTER [None]
  - BLOOD MAGNESIUM DECREASED [None]
  - BLOOD PHOSPHORUS DECREASED [None]
  - CLOSTRIDIAL INFECTION [None]
  - DEVICE RELATED INFECTION [None]
  - DIARRHOEA [None]
  - EYE INFLAMMATION [None]
  - GASTROINTESTINAL FUNGAL INFECTION [None]
  - HYPOALBUMINAEMIA [None]
  - HYPOTENSION [None]
  - LIVER DISORDER [None]
  - MASTOIDITIS [None]
  - MULTI-ORGAN FAILURE [None]
  - OEDEMA PERIPHERAL [None]
  - ORAL FUNGAL INFECTION [None]
  - PLEURAL EFFUSION [None]
  - PNEUMONIA KLEBSIELLA [None]
  - PNEUMONITIS [None]
  - RESPIRATORY FAILURE [None]
  - SINUSITIS [None]
  - VULVOVAGINAL CANDIDIASIS [None]
